FAERS Safety Report 5688835-9 (Version None)
Quarter: 2008Q1

REPORT INFORMATION
  Report Type: 
  Country: None (occurrence: None)
  Receive Date: 20080331
  Receipt Date: 20020729
  Transmission Date: 20080703
  Serious: Yes (Death)
  Sender: FDA-Public Use
  Company Number: GB-ROCHE-318176

PATIENT
  Age: 59 Year
  Sex: Male
  Weight: 80 kg

DRUGS (9)
  1. XENICAL [Suspect]
     Indication: OBESITY
     Route: 048
     Dates: start: 20010702
  2. WARFARIN SODIUM [Concomitant]
     Indication: ATRIAL FIBRILLATION
     Route: 048
     Dates: start: 20000518
  3. CELIPROLOL [Concomitant]
     Indication: ANGINA PECTORIS
     Route: 048
     Dates: start: 19950515
  4. CORACTEN [Concomitant]
     Indication: HYPERTENSION
     Dosage: DOSE ENTERED AS 'XL'.
     Route: 048
     Dates: start: 20010720
  5. ATORVASTATIN CALCIUM [Concomitant]
     Dosage: NOCTE.
     Route: 048
     Dates: start: 20010930
  6. ALLOPURINOL [Concomitant]
     Indication: GOUT
     Dosage: MANE.
     Route: 048
     Dates: start: 20010910
  7. ISOTARD [Concomitant]
     Indication: ANGINA PECTORIS
     Dosage: ENTERED AS 60 - 2 MANE/EVE.
     Route: 048
     Dates: start: 20011011
  8. IMDUR [Concomitant]
  9. GTN-S [Concomitant]

REACTIONS (3)
  - CHEST PAIN [None]
  - MYALGIA [None]
  - MYOCARDIAL INFARCTION [None]
